FAERS Safety Report 5673159-6 (Version None)
Quarter: 2008Q1

REPORT INFORMATION
  Report Type: 
  Country: None (occurrence: None)
  Receive Date: 20080319
  Receipt Date: 20080314
  Transmission Date: 20080703
  Serious: Yes (Life-Threatening, Hospitalization)
  Sender: FDA-Public Use
  Company Number: SE-BRISTOL-MYERS SQUIBB COMPANY-14100267

PATIENT
  Age: 58 Year
  Sex: Female

DRUGS (6)
  1. GLUCOPHAGE [Suspect]
     Indication: DIABETES MELLITUS
     Route: 048
  2. LASIX [Concomitant]
  3. LOPID [Concomitant]
  4. ATENOLOL [Concomitant]
  5. COZAAR [Concomitant]
     Dosage: 1 DOSAGE FORM = 100MG/25MG
  6. LANTUS [Concomitant]
     Dosage: 1 DOSAGE FORM = 100 ENHETER/ML

REACTIONS (5)
  - BLOOD CREATININE INCREASED [None]
  - CARDIAC ARREST [None]
  - LACTIC ACIDOSIS [None]
  - SEPSIS [None]
  - VISUAL DISTURBANCE [None]
